FAERS Safety Report 24358559 (Version 2)
Quarter: 2024Q4

REPORT INFORMATION
  Report Type: Spontaneous
  Country: US (occurrence: US)
  Receive Date: 20240924
  Receipt Date: 20241029
  Transmission Date: 20250114
  Serious: Yes (Other)
  Sender: PFIZER
  Company Number: US-PFIZER INC-PV202400124167

PATIENT
  Age: 44 Year
  Sex: Female

DRUGS (3)
  1. XELJANZ [Suspect]
     Active Substance: TOFACITINIB CITRATE
     Indication: Colitis ulcerative
     Dosage: START OF THERAPY: 1 TABLET BY MOUTH TWICE DAILY
     Route: 048
     Dates: start: 20240902, end: 202409
  2. XELJANZ [Suspect]
     Active Substance: TOFACITINIB CITRATE
     Indication: Uveitis
     Dosage: 5MG TABLET- 2 TABLETS (10MG) BY MOUTH TWICE DAILY
     Route: 048
     Dates: start: 202409
  3. RASUVO AUT INJ [Concomitant]
     Dosage: 0.5 ML

REACTIONS (7)
  - Colitis ulcerative [Unknown]
  - Diarrhoea [Unknown]
  - Eye inflammation [Unknown]
  - Vision blurred [Unknown]
  - Eye pain [Unknown]
  - Condition aggravated [Unknown]
  - Off label use [Unknown]

NARRATIVE: CASE EVENT DATE: 20240901
